FAERS Safety Report 18507588 (Version 1)
Quarter: 2020Q4

REPORT INFORMATION
  Report Type: Spontaneous
  Country: US (occurrence: US)
  Receive Date: 20201116
  Receipt Date: 20201116
  Transmission Date: 20210114
  Serious: No
  Sender: FDA-Public Use
  Company Number: US-TEVA-2020-US-1848133

PATIENT
  Sex: Female

DRUGS (2)
  1. COPAXONE [Suspect]
     Active Substance: GLATIRAMER ACETATE
     Dosage: FORM STRENGTH AND DOSE: UNKOWN
     Route: 065
  2. AUTOJECT2 (DEVICE) [Suspect]
     Active Substance: DEVICE
     Route: 065

REACTIONS (4)
  - Syringe issue [Unknown]
  - Incorrect dose administered [Unknown]
  - Injection site urticaria [Unknown]
  - Device malfunction [Unknown]
